FAERS Safety Report 11246750 (Version 1)
Quarter: 2015Q3

REPORT INFORMATION
  Report Type: Report from Study
  Country: US (occurrence: US)
  Receive Date: 20150708
  Receipt Date: 20150708
  Transmission Date: 20151125
  Serious: Yes (Hospitalization)
  Sender: FDA-Public Use
  Company Number: PHEH2015US012409

PATIENT
  Sex: Female

DRUGS (3)
  1. EXELON PATCH [Suspect]
     Active Substance: RIVASTIGMINE
     Dosage: PATCH 10 CM2 DAILY
     Route: 062
  2. ARICEPT [Suspect]
     Active Substance: DONEPEZIL HYDROCHLORIDE
     Indication: PRODUCT USED FOR UNKNOWN INDICATION
     Dosage: UNK
     Route: 065
  3. EXELON PATCH [Suspect]
     Active Substance: RIVASTIGMINE
     Indication: PRODUCT USED FOR UNKNOWN INDICATION
     Dosage: PATCH 5 CM2 DAILY
     Route: 062

REACTIONS (10)
  - Psychotic disorder [Unknown]
  - Sleep disorder [Unknown]
  - Memory impairment [Unknown]
  - Medication error [Unknown]
  - Mental disorder [Unknown]
  - Confusional state [Unknown]
  - Agitation [Unknown]
  - Major depression [Unknown]
  - Mental status changes [Unknown]
  - Vascular dementia [Unknown]
